FAERS Safety Report 17429880 (Version 4)
Quarter: 2021Q3

REPORT INFORMATION
  Report Type: Spontaneous
  Country: US (occurrence: US)
  Receive Date: 20200218
  Receipt Date: 20210810
  Transmission Date: 20211014
  Serious: Yes (Other)
  Sender: FDA-Public Use
  Company Number: US-PFIZER INC-2020066576

PATIENT
  Age: 66 Year
  Sex: Male

DRUGS (1)
  1. INLYTA [Suspect]
     Active Substance: AXITINIB
     Indication: RENAL CANCER
     Dosage: 7 MG, 2X/DAY (BID)

REACTIONS (4)
  - Malaise [Unknown]
  - Varicella [Unknown]
  - Hypoacusis [Unknown]
  - Measles [Unknown]
